FAERS Safety Report 6673401-9 (Version None)
Quarter: 2010Q2

REPORT INFORMATION
  Report Type: 
  Country: None (occurrence: None)
  Receive Date: 20100408
  Receipt Date: 20100329
  Transmission Date: 20101027
  Serious: Yes (Life-Threatening, Hospitalization)
  Sender: FDA-Public Use
  Company Number: CA-PFIZER INC-2010039898

PATIENT
  Age: 55 Year
  Sex: Male
  Weight: 68.5 kg

DRUGS (3)
  1. BLINDED *NO SUBJECT DRUG [Suspect]
     Indication: BLADDER TRANSITIONAL CELL CARCINOMA
     Dosage: 50 MG, 1X/DAY
     Dates: start: 20091009, end: 20100312
  2. BLINDED *PLACEBO [Suspect]
     Indication: BLADDER TRANSITIONAL CELL CARCINOMA
     Dosage: 50 MG, 1X/DAY
     Dates: start: 20091009, end: 20100312
  3. BLINDED SUNITINIB MALATE [Suspect]
     Indication: BLADDER TRANSITIONAL CELL CARCINOMA
     Dosage: 50 MG, 1X/DAY
     Dates: start: 20091009, end: 20100312

REACTIONS (2)
  - FAILURE TO THRIVE [None]
  - RENAL IMPAIRMENT [None]
